FAERS Safety Report 14584607 (Version 1)
Quarter: 2018Q1

REPORT INFORMATION
  Report Type: Spontaneous
  Country: US (occurrence: US)
  Receive Date: 20180301
  Receipt Date: 20180301
  Transmission Date: 20180509
  Serious: No
  Sender: FDA-Public Use
  Company Number: US-AMGEN-USASP2018025551

PATIENT
  Age: 49 Year
  Sex: Female

DRUGS (5)
  1. TRAMADOLE [Suspect]
     Active Substance: TRAMADOL HYDROCHLORIDE
     Indication: PRODUCT USED FOR UNKNOWN INDICATION
     Dosage: UNK
     Route: 065
  2. MORPHINE [Concomitant]
     Active Substance: MORPHINE
     Dosage: UNK, EXTENDED RELEASE AT NIGHT
  3. CELEBREX [Concomitant]
     Active Substance: CELECOXIB
     Dosage: UNK, EVERY OTHER DAY
  4. FLEXERIL [Concomitant]
     Active Substance: CYCLOBENZAPRINE HYDROCHLORIDE
     Dosage: UNK, TWO TABLET AT NIGHT
  5. ENBREL [Suspect]
     Active Substance: ETANERCEPT
     Indication: ANKYLOSING SPONDYLITIS
     Dosage: 50 MG, QWK
     Route: 065

REACTIONS (8)
  - Anaemia [Not Recovered/Not Resolved]
  - Erythema [Unknown]
  - Swelling [Unknown]
  - Burning sensation [Not Recovered/Not Resolved]
  - Arthropod bite [Unknown]
  - Dizziness [Unknown]
  - Vitamin D deficiency [Not Recovered/Not Resolved]
  - Skin discolouration [Unknown]

NARRATIVE: CASE EVENT DATE: 2017
